FAERS Safety Report 20892151 (Version 2)
Quarter: 2023Q1

REPORT INFORMATION
  Report Type: Report from Study
  Country: US (occurrence: US)
  Receive Date: 20220530
  Receipt Date: 20230118
  Transmission Date: 20230417
  Serious: Yes (Hospitalization, Other)
  Sender: FDA-Public Use
  Company Number: US-UCBSA-2022029604

PATIENT
  Sex: Male

DRUGS (1)
  1. LACOSAMIDE [Suspect]
     Active Substance: LACOSAMIDE
     Indication: Seizure
     Dosage: 100 MILLIGRAM, 2X/DAY (BID)

REACTIONS (6)
  - Meningitis bacterial [Recovering/Resolving]
  - Brain oedema [Recovering/Resolving]
  - Cranial operation [Recovering/Resolving]
  - Prosthesis implantation [Recovering/Resolving]
  - Craniocerebral injury [Not Recovered/Not Resolved]
  - Impaired work ability [Not Recovered/Not Resolved]
